FAERS Safety Report 4684282-7 (Version None)
Quarter: 2005Q2

REPORT INFORMATION
  Report Type: 
  Country: None (occurrence: None)
  Receive Date: 20050531
  Receipt Date: 20041014
  Transmission Date: 20051028
  Serious: Yes (Hospitalization)
  Sender: FDA-Public Use
  Company Number: 200417443US

PATIENT
  Sex: Male
  Weight: 52.3 kg

DRUGS (2)
  1. LOVENOX [Suspect]
     Dosage: 1 MG/KG Q12H
  2. WARFARIN SODIUM [Concomitant]

REACTIONS (2)
  - HAEMORRHAGE [None]
  - INTERNATIONAL NORMALISED RATIO DECREASED [None]
